APPROVED DRUG PRODUCT: VALSARTAN
Active Ingredient: VALSARTAN
Strength: 40MG
Dosage Form/Route: TABLET;ORAL
Application: A218991 | Product #001 | TE Code: AB
Applicant: ZYDUS LIFESCIENCES LTD
Approved: Jul 22, 2024 | RLD: No | RS: No | Type: RX